FAERS Safety Report 14660907 (Version 1)
Quarter: 2018Q1

REPORT INFORMATION
  Report Type: Report from Study
  Country: US (occurrence: US)
  Receive Date: 20180320
  Receipt Date: 20180320
  Transmission Date: 20180509
  Serious: No
  Sender: FDA-Public Use
  Company Number: US-ALEXION PHARMACEUTICALS INC.-A201714531

PATIENT
  Age: 28 Year
  Sex: Male

DRUGS (2)
  1. STRENSIQ [Suspect]
     Active Substance: ASFOTASE ALFA
     Indication: HYPOPHOSPHATASIA
     Dosage: UNK,UNK
     Route: 065
  2. STRENSIQ [Suspect]
     Active Substance: ASFOTASE ALFA
     Dosage: 140 MG, TIW
     Route: 065

REACTIONS (4)
  - Fatigue [Unknown]
  - Blood alkaline phosphatase increased [Unknown]
  - Somnolence [Unknown]
  - Hypersomnia [Unknown]

NARRATIVE: CASE EVENT DATE: 20171218
